FAERS Safety Report 25488267 (Version 1)
Quarter: 2025Q2

REPORT INFORMATION
  Report Type: Spontaneous
  Country: US (occurrence: US)
  Receive Date: 20250627
  Receipt Date: 20250627
  Transmission Date: 20250716
  Serious: Yes (Other)
  Sender: PFIZER
  Company Number: US-PFIZER INC-PV202400128522

PATIENT
  Age: 78 Year
  Sex: Female
  Weight: 72.8 kg

DRUGS (3)
  1. BOSULIF [Suspect]
     Active Substance: BOSUTINIB MONOHYDRATE
     Indication: Chronic myeloid leukaemia
     Route: 048
     Dates: start: 20240803, end: 20240930
  2. BOSULIF [Suspect]
     Active Substance: BOSUTINIB MONOHYDRATE
     Dosage: 300 MG, DAILY (TAKE 3 TABLETS BY MOUTH DAILY)
     Route: 048
     Dates: start: 20241202
  3. SPRYCEL [Concomitant]
     Active Substance: DASATINIB
     Indication: Chronic myeloid leukaemia
     Dosage: 100 MG, DAILY
     Dates: start: 20180206

REACTIONS (11)
  - Renal impairment [Unknown]
  - Dry throat [Unknown]
  - Oedema peripheral [Recovering/Resolving]
  - Localised infection [Recovering/Resolving]
  - Mean platelet volume decreased [Unknown]
  - Carbon dioxide increased [Unknown]
  - Blood creatine increased [Unknown]
  - Blood calcium increased [Unknown]
  - Glomerular filtration rate abnormal [Unknown]
  - Blood uric acid increased [Unknown]
  - Inappropriate schedule of product administration [Unknown]

NARRATIVE: CASE EVENT DATE: 20250515
